FAERS Safety Report 24849027 (Version 2)
Quarter: 2025Q1

REPORT INFORMATION
  Report Type: Spontaneous
  Country: DE (occurrence: DE)
  Receive Date: 20250116
  Receipt Date: 20250120
  Transmission Date: 20250408
  Serious: Yes (Life-Threatening, Hospitalization, Other)
  Sender: SANDOZ
  Company Number: DE-002147023-PHHY2019DE168419

PATIENT
  Age: 79 Year
  Sex: Female
  Weight: 55 kg

DRUGS (21)
  1. LETROZOLE [Suspect]
     Active Substance: LETROZOLE
     Indication: Breast cancer metastatic
     Dosage: 2.5 MG, QD
     Route: 065
     Dates: start: 20190704, end: 20190819
  2. LETROZOLE [Suspect]
     Active Substance: LETROZOLE
     Indication: Hormone receptor positive HER2 negative breast cancer
     Dosage: 2.5 MG, QD, START DATE: 04-JUL-2019
     Route: 048
     Dates: start: 20190704
  3. PALBOCICLIB [Suspect]
     Active Substance: PALBOCICLIB
     Dosage: 100 MG, QD (SCHEME 21 DAYS INTAKE, 7 DAYS PAUSE),11-NOV-2021
     Route: 048
  4. PALBOCICLIB [Suspect]
     Active Substance: PALBOCICLIB
     Indication: Breast cancer metastatic
     Dosage: 100 MG, QD (STARTED ON 14 JAN 2020, CYCLIC (SCHEME 21 DAYS INTAKE, 7 DAYS PAUSE)
     Route: 048
  5. PALBOCICLIB [Suspect]
     Active Substance: PALBOCICLIB
     Dosage: 100 MG, QD, 09-SEP-2021 (SCHEME 21 DAYS INTAKE, 7 DAYS PAUSE)
     Route: 048
  6. PALBOCICLIB [Suspect]
     Active Substance: PALBOCICLIB
     Dosage: 100 MG, QD, 14-JAN-2020 (SCHEME 21 DAYS INTAKE, 7 DAYS PAUSE)
     Route: 048
  7. PALBOCICLIB [Suspect]
     Active Substance: PALBOCICLIB
     Dosage: 100 MG, QD, START DATE: 03-JUN-2020 (SCHEME 21 DAYS INTAKE, 7 DAYS PAUSE)
     Route: 048
  8. PALBOCICLIB [Suspect]
     Active Substance: PALBOCICLIB
     Dosage: 100 MG, QD, START DATE:12-AUG-2020 (SCHEME 21 DAYS INTAKE, 7 DAYS PAUSE)
     Route: 048
  9. PALBOCICLIB [Suspect]
     Active Substance: PALBOCICLIB
     Dosage: 75 MG, QD (SCHEME 21 DAYS INTAKE, 7 DAYS PAUSE), 01-SEP-2022
     Route: 048
  10. PALBOCICLIB [Suspect]
     Active Substance: PALBOCICLIB
     Dosage: 75 MG, QD (SCHEME 21 DAYS INTAKE, 7 DAYS PAUSE), 07-DEC-2022
     Route: 048
  11. PALBOCICLIB [Suspect]
     Active Substance: PALBOCICLIB
     Dosage: 75 MG, QD (SCHEME 21 DAYS INTAKE, 7 DAYS PAUSE),16-NOV-2022
     Route: 048
  12. RIBOCICLIB [Suspect]
     Active Substance: RIBOCICLIB
     Dosage: 400 MG, QD, ADMINISTRATION SCHEME 21 DAYS INTAKE,7 DAYS PAUSE
     Route: 048
     Dates: start: 20190808
  13. RIBOCICLIB [Suspect]
     Active Substance: RIBOCICLIB
     Indication: Hormone receptor positive HER2 negative breast cancer
     Dosage: 600 MG, QD, 600 MG, QD (ADMINISTRATION SCHEME 21 DAYS INTAKE, 7 DAYS PAUSE)
     Route: 048
     Dates: start: 20190704, end: 20190717
  14. RIBOCICLIB [Suspect]
     Active Substance: RIBOCICLIB
     Dosage: UNK, QD
     Route: 048
     Dates: start: 20190809, end: 20190809
  15. ASPIRIN [Concomitant]
     Active Substance: ASPIRIN
     Indication: Product used for unknown indication
     Dosage: 100 MG, QD (ONCE PER DAY AT NOON)
     Route: 065
     Dates: start: 2000
  16. CALCIUM [Concomitant]
     Active Substance: CALCIUM
     Indication: Product used for unknown indication
     Dosage: 400 MG, QD (ONCE PER DAY AT NOON)
     Route: 065
     Dates: start: 2016
  17. DAPAGLIFLOZIN [Concomitant]
     Active Substance: DAPAGLIFLOZIN
     Indication: Hyponatraemia
     Dosage: UNK, QD
     Route: 065
     Dates: start: 20220921
  18. DAPAGLIFLOZIN [Concomitant]
     Active Substance: DAPAGLIFLOZIN
     Indication: Diuretic therapy
  19. CHOLECALCIFEROL [Concomitant]
     Active Substance: CHOLECALCIFEROL
     Indication: Product used for unknown indication
     Dosage: 20000 IU, QMO (MONTHLY)
     Route: 065
     Dates: start: 2016
  20. Novalgin [Concomitant]
     Indication: Product used for unknown indication
     Route: 065
     Dates: start: 201904
  21. AMLODIPINE BESYLATE\OLMESARTAN MEDOXOMIL [Concomitant]
     Active Substance: AMLODIPINE BESYLATE\OLMESARTAN MEDOXOMIL
     Indication: Product used for unknown indication
     Dosage: 40 MG, QD (ONCE PER DAY IN THE MORNING)
     Route: 065
     Dates: start: 2019

REACTIONS (39)
  - Nephrolithiasis [Recovered/Resolved]
  - Chronic kidney disease [Not Recovered/Not Resolved]
  - Blood creatinine increased [Not Recovered/Not Resolved]
  - General physical health deterioration [Recovered/Resolved]
  - Asthenia [Unknown]
  - Glomerular filtration rate decreased [Recovering/Resolving]
  - Nephrolithiasis [Recovered/Resolved]
  - Leukopenia [Recovered/Resolved]
  - Renal impairment [Not Recovered/Not Resolved]
  - Thrombocytopenia [Recovered/Resolved]
  - Acute kidney injury [Recovered/Resolved]
  - Osteoarthritis [Recovered/Resolved]
  - Hyponatraemia [Recovered/Resolved]
  - Osteoarthritis [Not Recovered/Not Resolved]
  - Cardiac failure congestive [Not Recovered/Not Resolved]
  - Vomiting [Recovered/Resolved]
  - Nausea [Recovered/Resolved]
  - Neutropenia [Recovered/Resolved]
  - Concomitant disease aggravated [Recovering/Resolving]
  - Atrial fibrillation [Recovered/Resolved]
  - Electrocardiogram QT prolonged [Recovered/Resolved]
  - Anaemia [Not Recovered/Not Resolved]
  - Urinary retention [Not Recovered/Not Resolved]
  - Cardiac failure [Recovered/Resolved with Sequelae]
  - Hypertension [Recovered/Resolved]
  - Blood glucose increased [Recovering/Resolving]
  - Eastern Cooperative Oncology Group performance status worsened [Recovered/Resolved]
  - Bronchitis [Recovered/Resolved]
  - Cystitis [Recovered/Resolved]
  - Infection [Recovered/Resolved]
  - Blood thyroid stimulating hormone increased [Recovered/Resolved]
  - C-reactive protein increased [Not Recovered/Not Resolved]
  - Pleural effusion [Recovering/Resolving]
  - Urinary tract infection [Not Recovered/Not Resolved]
  - Blood pressure increased [Not Recovered/Not Resolved]
  - Oedema peripheral [Recovered/Resolved]
  - Dry skin [Recovered/Resolved]
  - Dyspnoea [Not Recovered/Not Resolved]
  - Product use in unapproved indication [Unknown]

NARRATIVE: CASE EVENT DATE: 20190716
